FAERS Safety Report 7131304-X (Version None)
Quarter: 2010Q4

REPORT INFORMATION
  Report Type: 
  Country: None (occurrence: None)
  Receive Date: 20101201
  Receipt Date: 20101116
  Transmission Date: 20110411
  Serious: Yes (Congenital Anomaly)
  Sender: FDA-Public Use
  Company Number: GXKR2010GB13024

PATIENT

DRUGS (5)
  1. FLUOXETINE [Suspect]
     Dosage: MATERNAL DOSE: 20 MG, QD
     Route: 064
     Dates: end: 20091216
  2. METHADONE [Suspect]
     Dosage: MATERNAL DOSE: 130 MG, QD
     Route: 064
     Dates: end: 20100525
  3. METHADONE [Suspect]
     Dosage: MATERNAL DOSE: 100 MG, QD
     Route: 064
     Dates: start: 20100525
  4. TRAZODONE [Suspect]
     Dosage: MATERNAL DOSE: 50 MG, QD
     Route: 064
     Dates: end: 20091216
  5. CERAZETTE [Concomitant]
     Dosage: 75 MG, QD
     Route: 064
     Dates: end: 20091207

REACTIONS (4)
  - CHOROIDAL COLOBOMA [None]
  - DRUG EXPOSURE DURING PREGNANCY [None]
  - IRIS COLOBOMA [None]
  - OPTIC NERVE DISORDER [None]
